FAERS Safety Report 9736019 (Version 1)
Quarter: 2013Q4

REPORT INFORMATION
  Report Type: Spontaneous
  Country: US (occurrence: None)
  Receive Date: 20131204
  Receipt Date: 20131204
  Transmission Date: 20140711
  Serious: Yes (Hospitalization)
  Sender: FDA-Public Use
  Company Number: UTC-039760

PATIENT
  Age: 25 Year
  Sex: Female
  Weight: 61.3 kg

DRUGS (4)
  1. TYVASO [Suspect]
     Indication: COR PULMONALE CHRONIC
     Dosage: 12-54MCG (4 IN 1 D), INHALATION
     Dates: start: 20131016
  2. ADIRCA (TADALAFIL) (UNKNOWN) [Concomitant]
  3. COUMADIN (WARFARIN SODIUM) (UNKNOWN) [Concomitant]
  4. LETAIRIS (AMBRISENTAN) (UNKNOWN) [Concomitant]

REACTIONS (3)
  - Pneumonia [None]
  - Herpes zoster [None]
  - Chest pain [None]
